FAERS Safety Report 21844714 (Version 1)
Quarter: 2023Q1

REPORT INFORMATION
  Report Type: Other
  Country: US (occurrence: US)
  Receive Date: 20230110
  Receipt Date: 20230110
  Transmission Date: 20230417
  Serious: Yes (Hospitalization, Other)
  Sender: FDA-Public Use
  Company Number: US-HLS-202202283

PATIENT
  Age: 48 Year
  Sex: Male

DRUGS (2)
  1. CLOZAPINE [Suspect]
     Active Substance: CLOZAPINE
     Indication: Schizophrenia
     Dosage: THE PATIENT RECEIVED CLOZAPINE 12.5 MG. CLOZAPINE CONTINUED TO BE TITRATED UP TO 250 MG/DAY. PATIENT
     Route: 065
  2. OLANZAPINE [Suspect]
     Active Substance: OLANZAPINE
     Indication: Schizophrenia
     Dosage: PATIENT WAS STARTED ON OLANZAPINE 5 MG/DAY. OLANZAPINE WAS TITRATED TO 40 MG/DAY ON DAY 6 OF HOSPITA
     Route: 065

REACTIONS (5)
  - CSF protein increased [Unknown]
  - Delirium [Recovered/Resolved]
  - Electroencephalogram abnormal [Unknown]
  - CSF lymphocyte count increased [Unknown]
  - Hypertransaminasaemia [Unknown]
